FAERS Safety Report 8971710 (Version 1)
Quarter: 2012Q4

REPORT INFORMATION
  Report Type: 
  Country: GB (occurrence: GB)
  Receive Date: 20121217
  Receipt Date: 20121217
  Transmission Date: 20130627
  Serious: Yes (Other)
  Sender: FDA-Public Use
  Company Number: GB-TEVA-374832ISR

PATIENT
  Age: 61 Year
  Sex: Female

DRUGS (3)
  1. NAPROXEN [Suspect]
     Indication: MUSCLE SPASMS
     Route: 048
     Dates: start: 20121106, end: 20121115
  2. ZANTAC [Suspect]
     Indication: PROPHYLAXIS
     Dosage: Indication: stomach protection.
     Route: 048
     Dates: start: 20121106, end: 20121115
  3. LEVETIRACETAM [Concomitant]
     Indication: EPILEPSY
     Dosage: Continues.
     Route: 048
     Dates: start: 20081215

REACTIONS (2)
  - Grand mal convulsion [Recovering/Resolving]
  - Epilepsy [Recovering/Resolving]
